FAERS Safety Report 5680412-9 (Version None)
Quarter: 2008Q1

REPORT INFORMATION
  Report Type: 
  Country: None (occurrence: None)
  Receive Date: 20080326
  Receipt Date: 20080320
  Transmission Date: 20080703
  Serious: Yes (Hospitalization)
  Sender: FDA-Public Use
  Company Number: FR-BRISTOL-MYERS SQUIBB COMPANY-14096812

PATIENT
  Age: 48 Year
  Sex: Female
  Weight: 64 kg

DRUGS (5)
  1. SPRYCEL [Suspect]
     Indication: CHRONIC MYELOID LEUKAEMIA
     Route: 048
     Dates: start: 20070306, end: 20080226
  2. GLEEVEC [Concomitant]
     Indication: CHRONIC MYELOID LEUKAEMIA
     Dates: end: 20070301
  3. LIPANTHYL [Concomitant]
     Indication: DYSLIPIDAEMIA
     Dates: start: 20020820
  4. METEOSPASMYL [Concomitant]
     Indication: IRRITABLE BOWEL SYNDROME
     Dosage: DOSAGE FORM = TABLET
     Dates: start: 20030128
  5. MONOCRIXO [Concomitant]
     Indication: MYALGIA
     Dosage: DOSAGE FORM = TABLET
     Dates: start: 20060328, end: 20080226

REACTIONS (1)
  - BRONCHIAL DISORDER [None]
